FAERS Safety Report 10200318 (Version 1)
Quarter: 2014Q2

REPORT INFORMATION
  Report Type: Report from Study
  Country: MX (occurrence: MX)
  Receive Date: 20140527
  Receipt Date: 20140527
  Transmission Date: 20141212
  Serious: Yes (Other)
  Sender: FDA-Public Use
  Company Number: PHHY2014MX064631

PATIENT
  Age: 67 Year
  Sex: Female

DRUGS (2)
  1. CO-DIOVAN [Suspect]
     Indication: HYPERTENSION
     Dosage: 1 DF (160/ 12.5 MG), DAILY
     Route: 048
  2. ASPIRIN [Concomitant]
     Dosage: 1 DF, DAILY

REACTIONS (9)
  - Diabetes mellitus [Not Recovered/Not Resolved]
  - Retinal infarction [Not Recovered/Not Resolved]
  - Glaucoma [Not Recovered/Not Resolved]
  - Varicose vein [Not Recovered/Not Resolved]
  - Food intolerance [Recovering/Resolving]
  - Ear congestion [Not Recovered/Not Resolved]
  - Vertigo [Not Recovered/Not Resolved]
  - Vomiting [Not Recovered/Not Resolved]
  - Dizziness [Not Recovered/Not Resolved]
